FAERS Safety Report 14558608 (Version 1)
Quarter: 2018Q1

REPORT INFORMATION
  Report Type: Spontaneous
  Country: US (occurrence: US)
  Receive Date: 20180221
  Receipt Date: 20180221
  Transmission Date: 20180509
  Serious: No
  Sender: FDA-Public Use
  Company Number: US-TEVA-2018-US-860043

PATIENT
  Sex: Male

DRUGS (1)
  1. MUPIROCIN. [Suspect]
     Active Substance: MUPIROCIN
     Indication: RHINITIS
     Dosage: DOSE STRENGTH:  2%
     Dates: start: 20180208

REACTIONS (2)
  - Incorrect route of drug administration [Unknown]
  - Pain [Unknown]

NARRATIVE: CASE EVENT DATE: 20180208
